FAERS Safety Report 7734646-X (Version None)
Quarter: 2011Q3

REPORT INFORMATION
  Report Type: 
  Country: None (occurrence: None)
  Receive Date: 20110901
  Receipt Date: 20110819
  Transmission Date: 20111222
  Serious: Yes (Life-Threatening, Hospitalization)
  Sender: FDA-Public Use
  Company Number: TCI2011A04319

PATIENT
  Age: 75 Year
  Sex: Female

DRUGS (1)
  1. LANSOPRAZOLE [Suspect]
     Indication: GASTRIC ULCER
     Dosage: 30 MG (30 MG, 1 IN 1 D), PER ORAL
     Route: 048
     Dates: start: 20110616, end: 20110617

REACTIONS (10)
  - COUGH [None]
  - COMPUTERISED TOMOGRAM THORAX ABNORMAL [None]
  - CELL MARKER INCREASED [None]
  - SURFACTANT PROTEIN INCREASED [None]
  - LUNG DISORDER [None]
  - PYREXIA [None]
  - OXYGEN SATURATION DECREASED [None]
  - DYSPNOEA [None]
  - CHEST X-RAY ABNORMAL [None]
  - PNEUMONIA [None]
